FAERS Safety Report 4444424-5 (Version None)
Quarter: 2004Q3

REPORT INFORMATION
  Report Type: 
  Country: None (occurrence: None)
  Receive Date: 20040902
  Receipt Date: 20040706
  Transmission Date: 20050211
  Serious: Yes (Death, Hospitalization)
  Sender: FDA-Public Use
  Company Number: A03200402174

PATIENT
  Age: 84 Year
  Sex: Female
  Weight: 63.5036 kg

DRUGS (5)
  1. PLAVIX [Suspect]
     Indication: TRANSIENT ISCHAEMIC ATTACK
     Dosage: 75 MG QD - ORAL
     Route: 048
     Dates: start: 20040617, end: 20040621
  2. CANDERSARTAN CILEXETIL [Concomitant]
  3. DIGOXIN [Concomitant]
  4. VITAMINS NOS [Concomitant]
  5. CALCIUM [Concomitant]

REACTIONS (6)
  - CONVULSION [None]
  - HAEMATEMESIS [None]
  - POST PROCEDURAL COMPLICATION [None]
  - RECTAL HAEMORRHAGE [None]
  - SMALL INTESTINAL HAEMORRHAGE [None]
  - VOLUME BLOOD DECREASED [None]
